FAERS Safety Report 4837512-2 (Version None)
Quarter: 2005Q4

REPORT INFORMATION
  Report Type: 
  Country: None (occurrence: None)
  Receive Date: 20051128
  Receipt Date: 20051122
  Transmission Date: 20060501
  Serious: Yes (Hospitalization)
  Sender: FDA-Public Use
  Company Number: FR-GLAXOSMITHKLINE-B0401503A

PATIENT
  Age: 64 Year
  Sex: Male

DRUGS (1)
  1. AUGMENTIN [Suspect]
     Indication: COUGH
     Dosage: 3UNIT PER DAY
     Route: 048
     Dates: start: 20050125, end: 20050201

REACTIONS (3)
  - ABDOMINAL PAIN [None]
  - DYSPEPSIA [None]
  - VOMITING [None]
